FAERS Safety Report 6207032-1 (Version None)
Quarter: 2009Q2

REPORT INFORMATION
  Report Type: 
  Country: None (occurrence: None)
  Receive Date: 20090521
  Receipt Date: 20090331
  Transmission Date: 20091009
  Serious: Yes (Hospitalization)
  Sender: FDA-Public Use
  Company Number: 2009BH005199

PATIENT
  Age: 50 Year
  Sex: Female

DRUGS (4)
  1. CYTOXAN [Suspect]
     Indication: BREAST CANCER
     Dosage: 578 MG; IV; 1070 MG; IV
     Route: 042
     Dates: start: 20090210, end: 20090210
  2. CYTOXAN [Suspect]
     Indication: BREAST CANCER
     Dosage: 578 MG; IV; 1070 MG; IV
     Route: 042
     Dates: start: 20090317, end: 20090317
  3. ADRIAMYCIN RDF [Suspect]
     Indication: BREAST CANCER
     Dosage: 58 MG; IV; 107 MG; IV
     Route: 042
     Dates: start: 20090210, end: 20090210
  4. ADRIAMYCIN RDF [Suspect]
     Indication: BREAST CANCER
     Dosage: 58 MG; IV; 107 MG; IV
     Route: 042
     Dates: start: 20090317, end: 20090317

REACTIONS (1)
  - PANCYTOPENIA [None]
